FAERS Safety Report 5275168-8 (Version None)
Quarter: 2007Q1

REPORT INFORMATION
  Report Type: 
  Country: None (occurrence: None)
  Receive Date: 20070320
  Receipt Date: 20070305
  Transmission Date: 20070707
  Serious: Yes (Other)
  Sender: FDA-Public Use
  Company Number: GB-GDP-0512545

PATIENT
  Age: 79 Year
  Sex: Female

DRUGS (1)
  1. METVIX (METHYL AMINOLEVULINATE HYDROCHLORIDE) [Suspect]
     Indication: BASAL CELL CARCINOMA
     Dosage: NI TP
     Route: 061
     Dates: start: 20040801, end: 20040801

REACTIONS (3)
  - DERMATITIS ALLERGIC [None]
  - DERMATITIS CONTACT [None]
  - ECZEMA [None]
